FAERS Safety Report 12885109 (Version 1)
Quarter: 2016Q4

REPORT INFORMATION
  Report Type: Spontaneous
  Country: MX (occurrence: MX)
  Receive Date: 20161026
  Receipt Date: 20161026
  Transmission Date: 20170207
  Serious: Yes (Hospitalization, Other)
  Sender: FDA-Public Use
  Company Number: MX-TEVA-706304ISR

PATIENT
  Age: 32 Year
  Sex: Female
  Weight: 88 kg

DRUGS (1)
  1. OXYTOCIN. [Suspect]
     Active Substance: OXYTOCIN
     Indication: OBSTETRICAL PROCEDURE
     Route: 041
     Dates: start: 20090113, end: 20090113

REACTIONS (5)
  - Seizure [Recovered/Resolved]
  - Generalised oedema [Recovered/Resolved]
  - Respiratory failure [Recovered/Resolved]
  - Anaphylactic shock [Recovered/Resolved]
  - Rash generalised [Recovered/Resolved]

NARRATIVE: CASE EVENT DATE: 20090113
